FAERS Safety Report 5646622-1 (Version None)
Quarter: 2008Q1

REPORT INFORMATION
  Report Type: 
  Country: None (occurrence: None)
  Receive Date: 20080303
  Receipt Date: 20080303
  Transmission Date: 20080703
  Serious: Yes (Other)
  Sender: FDA-Public Use
  Company Number: None

PATIENT
  Age: 85 Year
  Sex: Male
  Weight: 63.5036 kg

DRUGS (1)
  1. HEPARIN SODIUM [Suspect]
     Indication: HAEMODIALYSIS
     Dosage: 30 ML MULTIPLE DOSE IV
     Route: 042
     Dates: start: 20080115, end: 20080215

REACTIONS (8)
  - BLOOD PRESSURE DECREASED [None]
  - DEFAECATION URGENCY [None]
  - DIARRHOEA [None]
  - FALL [None]
  - LOSS OF CONSCIOUSNESS [None]
  - PHARMACEUTICAL PRODUCT COMPLAINT [None]
  - PRURITUS [None]
  - SPINAL FRACTURE [None]
